FAERS Safety Report 17486867 (Version 1)
Quarter: 2020Q1

REPORT INFORMATION
  Report Type: Spontaneous
  Country: PL (occurrence: PL)
  Receive Date: 20200303
  Receipt Date: 20200303
  Transmission Date: 20200409
  Serious: Yes (Other)
  Sender: FDA-Public Use
  Company Number: PL-TEVA-2020-PL-1194193

PATIENT
  Sex: Female

DRUGS (1)
  1. PINEXET [Suspect]
     Active Substance: QUETIAPINE
     Route: 065

REACTIONS (6)
  - Headache [Unknown]
  - Irritability [Unknown]
  - Somnolence [Unknown]
  - Musculoskeletal stiffness [Unknown]
  - Dry mouth [Unknown]
  - Mental impairment [Unknown]
